FAERS Safety Report 22249622 (Version 1)
Quarter: 2023Q2

REPORT INFORMATION
  Report Type: Report from Study
  Country: US (occurrence: US)
  Receive Date: 20230425
  Receipt Date: 20230425
  Transmission Date: 20230721
  Serious: Yes (Other)
  Sender: FDA-Public Use
  Company Number: US-TAKEDA-US202022970

PATIENT
  Age: 71 Year
  Sex: Female

DRUGS (1)
  1. HUMAN IMMUNOGLOBULIN G\HYALURONIDASE RECOMBINANT HUMAN [Suspect]
     Active Substance: HUMAN IMMUNOGLOBULIN G\HYALURONIDASE RECOMBINANT HUMAN
     Indication: Selective IgG subclass deficiency
     Dosage: UNK
     Route: 065
     Dates: end: 20221218

REACTIONS (6)
  - Renal cancer [Unknown]
  - Wrist fracture [Recovering/Resolving]
  - Fall [Recovering/Resolving]
  - Osteoporosis [Unknown]
  - Respiratory disorder [Unknown]
  - Economic problem [Unknown]

NARRATIVE: CASE EVENT DATE: 20220506
